FAERS Safety Report 5940045-3 (Version None)
Quarter: 2008Q4

REPORT INFORMATION
  Report Type: 
  Country: None (occurrence: None)
  Receive Date: 20081104
  Receipt Date: 20081024
  Transmission Date: 20090506
  Serious: Yes (Other)
  Sender: FDA-Public Use
  Company Number: PHEH2008US09153

PATIENT
  Age: 55 Year
  Sex: Female

DRUGS (1)
  1. RECLAST [Suspect]
     Indication: FRACTURE
     Dosage: UNK
     Dates: start: 20081007, end: 20081007

REACTIONS (13)
  - ANOREXIA [None]
  - ARTHRALGIA [None]
  - DYSPEPSIA [None]
  - DYSPNOEA [None]
  - FEAR [None]
  - HEADACHE [None]
  - INFLUENZA [None]
  - JOINT LOCK [None]
  - MOBILITY DECREASED [None]
  - PAIN [None]
  - PYREXIA [None]
  - TREMOR [None]
  - WEIGHT DECREASED [None]
